FAERS Safety Report 11095074 (Version 1)
Quarter: 2015Q2

REPORT INFORMATION
  Report Type: Spontaneous
  Country: US (occurrence: US)
  Receive Date: 20150506
  Receipt Date: 20150506
  Transmission Date: 20150821
  Serious: No
  Sender: FDA-Public Use
  Company Number: US-SA-2014SA058419

PATIENT
  Age: 65 Year
  Sex: Female

DRUGS (1)
  1. APIDRA SOLOSTAR [Suspect]
     Active Substance: INSULIN GLULISINE
     Indication: TYPE 2 DIABETES MELLITUS
     Dosage: FREQUENCY: 3 TIMES DOSE:40 UNIT(S)
     Route: 065
     Dates: start: 201311

REACTIONS (2)
  - Skin induration [Unknown]
  - Injection site pain [Unknown]
